FAERS Safety Report 4304498-9 (Version None)
Quarter: 2004Q1

REPORT INFORMATION
  Report Type: 
  Country: None (occurrence: None)
  Receive Date: 20040224
  Receipt Date: 20040213
  Transmission Date: 20041129
  Serious: Yes (Hospitalization)
  Sender: FDA-Public Use
  Company Number: DK-JNJFOC-20040203169

PATIENT
  Age: 57 Year
  Sex: Female
  Weight: 70 kg

DRUGS (10)
  1. REMICADE [Suspect]
     Indication: PSORIASIS
     Dosage: 350 MG, INTRAVENOUS
     Route: 042
     Dates: start: 20040116
  2. METHOTREXATE [Concomitant]
  3. CIPRAMIL (CITALOPRAM HYDROBROMIDE) [Concomitant]
  4. DIAZEPAM [Concomitant]
  5. IMOVANE (ZOPICLONE) [Concomitant]
  6. TRADOLAN (TRAMADOL HYDROCHLORIDE) [Concomitant]
  7. DERMOVAT (CLOBETASOL PROPIONATE)OINTMENT [Concomitant]
  8. LOCOID (HYDROCORTISONE BUTYRATE) CREAM [Concomitant]
  9. HYDROCORTISONE (HYDROCORTISONE) CREAM [Concomitant]
  10. BETAMETHASONE VALERATE AND CLIOQUINOL (BETNOVATE-C) [Concomitant]

REACTIONS (6)
  - CHILLS [None]
  - PAIN [None]
  - PNEUMOCOCCAL INFECTION [None]
  - PNEUMONIA [None]
  - PYREXIA [None]
  - SEPSIS [None]
